FAERS Safety Report 21383582 (Version 2)
Quarter: 2022Q4

REPORT INFORMATION
  Report Type: Report from Study
  Country: LT (occurrence: LT)
  Receive Date: 20220927
  Receipt Date: 20221012
  Transmission Date: 20230113
  Serious: Yes (Death, Hospitalization, Other)
  Sender: FDA-Public Use
  Company Number: LT-ABBVIE-22P-234-4527700-00

PATIENT
  Sex: Male
  Weight: 91 kg

DRUGS (3)
  1. VENETOCLAX [Suspect]
     Active Substance: VENETOCLAX
     Indication: Acute myeloid leukaemia
     Route: 048
     Dates: start: 20211006, end: 20211203
  2. LOW DOSE ARAC (CYTARABINE) [Concomitant]
     Indication: Product used for unknown indication
     Dates: start: 2018
  3. AZACITIDINE [Concomitant]
     Active Substance: AZACITIDINE
     Indication: Product used for unknown indication
     Dates: start: 20211006

REACTIONS (2)
  - Bacterial sepsis [Fatal]
  - Febrile neutropenia [Fatal]

NARRATIVE: CASE EVENT DATE: 20211215
